FAERS Safety Report 19936871 (Version 2)
Quarter: 2021Q4

REPORT INFORMATION
  Report Type: Report from Study
  Country: CA (occurrence: CA)
  Receive Date: 20211009
  Receipt Date: 20211024
  Transmission Date: 20220304
  Serious: Yes (Other)
  Sender: FDA-Public Use
  Company Number: NVSC2021CA123686

PATIENT
  Age: 80 Year
  Sex: Female

DRUGS (4)
  1. SANDOSTATIN LAR DEPOT [Suspect]
     Active Substance: OCTREOTIDE ACETATE
     Indication: Acromegaly
     Dosage: 30 MG, Q4W
     Route: 030
     Dates: start: 20210205, end: 20210912
  2. SANDOSTATIN LAR DEPOT [Suspect]
     Active Substance: OCTREOTIDE ACETATE
  3. SANDOSTATIN LAR DEPOT [Suspect]
     Active Substance: OCTREOTIDE ACETATE
  4. SULFOSALICYLIC ACID [Concomitant]
     Active Substance: SULFOSALICYLIC ACID
     Indication: Product used for unknown indication
     Dosage: UNK
     Route: 065

REACTIONS (17)
  - Neoplasm progression [Unknown]
  - Invasive papillary breast carcinoma [Unknown]
  - Invasive ductal breast carcinoma [Unknown]
  - Endometrial cancer [Unknown]
  - Cervix carcinoma [Unknown]
  - Metastases to liver [Unknown]
  - Blood pressure increased [Unknown]
  - Hypertension [Unknown]
  - Blood pressure systolic increased [Unknown]
  - Endometrial thickening [Unknown]
  - Lymphadenopathy [Unknown]
  - Hepatic lesion [Unknown]
  - Fatigue [Not Recovered/Not Resolved]
  - Nausea [Recovering/Resolving]
  - Abdominal pain [Not Recovered/Not Resolved]
  - Constipation [Not Recovered/Not Resolved]
  - Drug ineffective [Unknown]

NARRATIVE: CASE EVENT DATE: 20210101
